FAERS Safety Report 4631182-4 (Version None)
Quarter: 2005Q2

REPORT INFORMATION
  Report Type: 
  Country: None (occurrence: None)
  Receive Date: 20050405
  Receipt Date: 20050405
  Transmission Date: 20051028
  Serious: Yes (Other)
  Sender: FDA-Public Use
  Company Number: None

PATIENT
  Age: 53 Year
  Sex: Male
  Weight: 99.7913 kg

DRUGS (1)
  1. FENTANYL PATCH 50 MCG MYLAN [Suspect]
     Indication: BACK PAIN
     Dosage: 50 MCG Q 3 D
     Dates: start: 20050309

REACTIONS (3)
  - DRUG EFFECT DECREASED [None]
  - DRUG EFFECT INCREASED [None]
  - PHARMACEUTICAL PRODUCT COMPLAINT [None]
